FAERS Safety Report 14690742 (Version 1)
Quarter: 2018Q1

REPORT INFORMATION
  Report Type: Spontaneous
  Country: PL (occurrence: PL)
  Receive Date: 20180328
  Receipt Date: 20180328
  Transmission Date: 20180509
  Serious: Yes (Hospitalization, Other)
  Sender: FDA-Public Use
  Company Number: PL-009507513-1803POL011341

PATIENT
  Age: 44 Year
  Sex: Female

DRUGS (1)
  1. KEYTRUDA [Suspect]
     Active Substance: PEMBROLIZUMAB
     Indication: METASTATIC MALIGNANT MELANOMA
     Dosage: 3 MG/KG, EVERY 21 DAYS
     Route: 042
     Dates: start: 201503, end: 201510

REACTIONS (26)
  - Dysarthria [Unknown]
  - Herpes zoster [Recovering/Resolving]
  - Bile duct stenosis [Unknown]
  - Fungal skin infection [Recovering/Resolving]
  - Culture urine positive [Recovering/Resolving]
  - Electrolyte imbalance [Unknown]
  - Bile duct cancer [Unknown]
  - Abdominal pain [Unknown]
  - Fungal infection [Recovering/Resolving]
  - Haemobilia [Unknown]
  - Malignant neoplasm progression [Not Recovered/Not Resolved]
  - Blood thyroid stimulating hormone abnormal [Recovering/Resolving]
  - Liver disorder [Unknown]
  - Cachexia [Recovering/Resolving]
  - Hepatic mass [Unknown]
  - Nausea [Unknown]
  - Rash generalised [Unknown]
  - Diarrhoea [Unknown]
  - Paranasal sinus mucosal hypertrophy [Unknown]
  - Abdominal pain [Unknown]
  - General physical condition abnormal [Unknown]
  - Autoimmune endocrine disorder [Recovering/Resolving]
  - Vomiting [Unknown]
  - Eyelid ptosis [Unknown]
  - Asthenia [Unknown]
  - Decreased appetite [Recovering/Resolving]

NARRATIVE: CASE EVENT DATE: 2015
